FAERS Safety Report 6879539-5 (Version None)
Quarter: 2010Q3

REPORT INFORMATION
  Report Type: 
  Country: None (occurrence: None)
  Receive Date: 20100728
  Receipt Date: 20100712
  Transmission Date: 20110219
  Serious: Yes (Other)
  Sender: FDA-Public Use
  Company Number: PHHY2010GB35512

PATIENT
  Sex: Male

DRUGS (13)
  1. CLOZARIL [Suspect]
     Indication: SCHIZOPHRENIA
     Dosage: UNK
     Dates: start: 20090604
  2. CLOZARIL [Suspect]
     Dosage: 450 MG/DAY
     Route: 048
     Dates: start: 20100512
  3. COCAINE [Suspect]
  4. PREGABALIN [Concomitant]
     Indication: SCHIZOPHRENIA, PARANOID TYPE
     Dosage: 600 MG, QD
     Route: 048
     Dates: start: 20100226
  5. PREGABALIN [Concomitant]
     Indication: AFFECTIVE DISORDER
  6. DIAZEPAM [Concomitant]
     Indication: SCHIZOPHRENIA, PARANOID TYPE
     Dosage: 4 MG, QD
     Route: 048
     Dates: start: 20100226
  7. DIAZEPAM [Concomitant]
     Indication: AFFECTIVE DISORDER
  8. AMISULPRIDE [Concomitant]
     Indication: SCHIZOPHRENIA, PARANOID TYPE
     Dosage: 200 MG, QD
     Route: 048
     Dates: start: 20100524
  9. AMISULPRIDE [Concomitant]
     Indication: AFFECTIVE DISORDER
  10. KWELLS [Concomitant]
     Indication: SCHIZOPHRENIA, PARANOID TYPE
     Dosage: 600 UG, QD
     Route: 048
     Dates: start: 20100226
  11. KWELLS [Concomitant]
     Indication: AFFECTIVE DISORDER
  12. OMEPRAZOLE [Concomitant]
     Indication: PEPTIC ULCER
     Dosage: 20 MG, QD
     Route: 048
  13. SIMVASTATIN [Concomitant]
     Indication: BLOOD CHOLESTEROL INCREASED
     Dosage: 20 MG, QD

REACTIONS (1)
  - DRUG ABUSE [None]
